FAERS Safety Report 9882518 (Version 2)
Quarter: 2014Q1

REPORT INFORMATION
  Report Type: Spontaneous
  Country: JP (occurrence: JP)
  Receive Date: 20140207
  Receipt Date: 20140207
  Transmission Date: 20141002
  Serious: Yes (Death)
  Sender: FDA-Public Use
  Company Number: PHHY2013JP152657

PATIENT
  Sex: Female
  Weight: 26 kg

DRUGS (6)
  1. RIVASTIGMIN [Suspect]
     Indication: DEMENTIA ALZHEIMER^S TYPE
     Dosage: 4.5 MG, ONCE A DAY
     Route: 062
     Dates: start: 2013, end: 2013
  2. RIVASTIGMIN [Suspect]
     Dosage: 9 MG, ONCE A DAY
     Route: 062
     Dates: start: 2013, end: 2013
  3. RIVASTIGMIN [Suspect]
     Dosage: 13.5 MG, ONCE DAY
     Route: 062
     Dates: start: 2013, end: 20131210
  4. RIVASTIGMIN [Suspect]
     Dosage: 18 MG, ONCE DAY
     Route: 062
     Dates: start: 20131211, end: 201312
  5. RIVASTIGMIN [Suspect]
     Dosage: 18 MG, ONCE DAY (CUT INTO HALVES)
     Route: 062
     Dates: start: 201312, end: 201312
  6. RIVASTIGMIN [Suspect]
     Dosage: 9 MG, ONCE A DAY
     Route: 062
     Dates: start: 201312

REACTIONS (3)
  - Respiratory disorder [Fatal]
  - Muscular weakness [Not Recovered/Not Resolved]
  - Medication error [Unknown]
